FAERS Safety Report 9796180 (Version 1)
Quarter: 2014Q1

REPORT INFORMATION
  Report Type: Spontaneous
  Country: FR (occurrence: FR)
  Receive Date: 20140103
  Receipt Date: 20140103
  Transmission Date: 20141002
  Serious: Yes (Death, Hospitalization)
  Sender: FDA-Public Use
  Company Number: FR-B.I. PHARMACEUTICALS,INC./RIDGEFIELD-2014-BI-00133FF

PATIENT
  Age: 87 Year
  Sex: Female

DRUGS (6)
  1. PRADAXA [Suspect]
     Indication: ATRIAL FIBRILLATION
     Dosage: 220 MG
     Route: 048
     Dates: start: 20131025, end: 20131127
  2. IRBESARTAN [Concomitant]
     Dosage: 150 MG
     Route: 048
  3. LERCANIDIPINE [Concomitant]
     Dosage: 10 MG
     Route: 048
  4. HEMIGOXINE NATIVELLE [Concomitant]
     Dosage: 0.125 MG
     Route: 048
  5. PANTOPRAZOLE [Concomitant]
     Dosage: 20 MG
     Route: 048
  6. BETASERC [Concomitant]
     Dosage: 24 MG
     Route: 048
     Dates: start: 20131120

REACTIONS (2)
  - Gastrointestinal haemorrhage [Fatal]
  - Haemorrhagic anaemia [Fatal]
